FAERS Safety Report 7738092-4 (Version None)
Quarter: 2011Q3

REPORT INFORMATION
  Report Type: 
  Country: None (occurrence: None)
  Receive Date: 20110908
  Receipt Date: 20110905
  Transmission Date: 20111222
  Serious: Yes (Other)
  Sender: FDA-Public Use
  Company Number: IE-PFIZER INC-2011207660

PATIENT
  Age: 45 Year
  Sex: Female

DRUGS (2)
  1. TYGACIL [Suspect]
     Dosage: 50MG UNIT DOSE ON DAY 2
  2. TYGACIL [Suspect]
     Dosage: 100MG UNIT DOSE ON DAY 1

REACTIONS (1)
  - HEPATITIS [None]
